FAERS Safety Report 11203185 (Version 1)
Quarter: 2015Q2

REPORT INFORMATION
  Report Type: Spontaneous
  Country: JP (occurrence: JP)
  Receive Date: 20150619
  Receipt Date: 20150619
  Transmission Date: 20150821
  Serious: Yes (Life-Threatening)
  Sender: FDA-Public Use
  Company Number: JP-AMGEN-JPNOT2014053886

PATIENT
  Age: 10 Year
  Sex: Male
  Weight: 36 kg

DRUGS (1)
  1. RANMARK [Suspect]
     Active Substance: DENOSUMAB
     Indication: BONE GIANT CELL TUMOUR
     Dosage: 120 MG, SEVEN TIMES
     Route: 062
     Dates: start: 20121127

REACTIONS (2)
  - Hypercalcaemia [Recovered/Resolved]
  - Epiphyseal disorder [Recovered/Resolved]

NARRATIVE: CASE EVENT DATE: 20130322
